FAERS Safety Report 22150482 (Version 1)
Quarter: 2023Q1

REPORT INFORMATION
  Report Type: Spontaneous
  Country: US (occurrence: US)
  Receive Date: 20230329
  Receipt Date: 20230329
  Transmission Date: 20230418
  Serious: Yes (Life-Threatening, Hospitalization, Other)
  Sender: FDA-Public Use
  Company Number: US-ALKEM LABORATORIES LIMITED-US-ALKEM-2023-03392

PATIENT
  Age: 67 Year
  Sex: Female

DRUGS (1)
  1. DABIGATRAN ETEXILATE MESYLATE [Suspect]
     Active Substance: DABIGATRAN ETEXILATE MESYLATE
     Indication: Product used for unknown indication
     Dosage: 75 MILLIGRAM, BID
     Route: 048

REACTIONS (8)
  - Acute kidney injury [Unknown]
  - Lower gastrointestinal haemorrhage [Recovering/Resolving]
  - Haemorrhagic arteriovenous malformation [Unknown]
  - Shock haemorrhagic [Unknown]
  - Anaemia [Unknown]
  - Hypotension [Unknown]
  - Drug clearance decreased [Unknown]
  - Overdose [Unknown]
